FAERS Safety Report 4565719-0 (Version None)
Quarter: 2005Q1

REPORT INFORMATION
  Report Type: 
  Country: None (occurrence: None)
  Receive Date: 20050126
  Receipt Date: 20050114
  Transmission Date: 20050727
  Serious: Yes (Hospitalization)
  Sender: FDA-Public Use
  Company Number: HQWYE604910APR03

PATIENT
  Age: 59 Year
  Sex: Female
  Weight: 68.55 kg

DRUGS (7)
  1. PREMARIN [Suspect]
     Indication: OESTROGEN REPLACEMENT THERAPY
     Dosage: 1.25 MG, ORAL
     Route: 048
     Dates: start: 19800101, end: 20020828
  2. LEVAQUIN [Concomitant]
  3. ZIAC [Concomitant]
  4. VIOXX [Concomitant]
  5. NEXIUM [Concomitant]
  6. DIOVAN HCT [Concomitant]
  7. LIPITOR [Concomitant]

REACTIONS (15)
  - ACTIVATED PARTIAL THROMBOPLASTIN TIME SHORTENED [None]
  - ARTERIAL THROMBOSIS [None]
  - BLOOD GLUCOSE INCREASED [None]
  - BLOOD POTASSIUM DECREASED [None]
  - BLOOD SODIUM DECREASED [None]
  - BLOOD UREA INCREASED [None]
  - DEEP VEIN THROMBOSIS [None]
  - HEPATIC STEATOSIS [None]
  - INSOMNIA [None]
  - NERVOUSNESS [None]
  - PROTHROMBIN TIME SHORTENED [None]
  - RENAL EMBOLISM [None]
  - SMOKER [None]
  - SPLENIC INFARCTION [None]
  - WHITE BLOOD CELL COUNT INCREASED [None]
